FAERS Safety Report 9279334 (Version 2)
Quarter: 2013Q2

REPORT INFORMATION
  Report Type: Spontaneous
  Country: JP (occurrence: None)
  Receive Date: 20130501
  Receipt Date: 20130621
  Transmission Date: 20140414
  Serious: Yes (Hospitalization)
  Sender: FDA-Public Use
  Company Number: 2013-001281

PATIENT
  Age: 71 Year
  Sex: Female

DRUGS (1)
  1. ACTONEL [Suspect]
     Indication: OSTEOPOROSIS
     Route: 048
     Dates: start: 2006, end: 2012

REACTIONS (5)
  - Atypical femur fracture [None]
  - Bone pain [None]
  - Fracture delayed union [None]
  - Fall [None]
  - Pathological fracture [None]
